FAERS Safety Report 8459837-4 (Version None)
Quarter: 2012Q2

REPORT INFORMATION
  Report Type: 
  Country: None (occurrence: None)
  Receive Date: 20120622
  Receipt Date: 20120618
  Transmission Date: 20120825
  Serious: Yes (Other)
  Sender: FDA-Public Use
  Company Number: PHHY2012MX045877

PATIENT
  Sex: Female

DRUGS (2)
  1. DIOVAN HCT [Suspect]
     Indication: HYPERTENSION
     Dosage: 2 DF (160/25 MG), PER DAY
     Dates: start: 20071211
  2. DIOVAN [Suspect]
     Indication: BLOOD GLUCOSE ABNORMAL
     Dosage: UNK UKN, UNK

REACTIONS (5)
  - ANXIETY [None]
  - STRESS [None]
  - BLOOD PRESSURE INADEQUATELY CONTROLLED [None]
  - APHAGIA [None]
  - OESOPHAGEAL RUPTURE [None]
